FAERS Safety Report 15626931 (Version 1)
Quarter: 2018Q4

REPORT INFORMATION
  Report Type: Spontaneous
  Country: IN (occurrence: IN)
  Receive Date: 20181116
  Receipt Date: 20181116
  Transmission Date: 20190205
  Serious: Yes (Other)
  Sender: FDA-Public Use
  Company Number: IN-PFIZER INC-2018470191

PATIENT
  Age: 75 Year
  Sex: Female

DRUGS (4)
  1. PROLUS DSR [Concomitant]
     Dosage: UNK, 1X/DAY
  2. BETADINE [Concomitant]
     Active Substance: POVIDONE-IODINE
  3. LOXOPON [Concomitant]
     Dosage: 500, 2X/DAY
  4. AROMASIN [Suspect]
     Active Substance: EXEMESTANE
     Indication: BREAST CANCER
     Dosage: 25 MG, 1X/DAY
     Route: 048
     Dates: start: 201808

REACTIONS (4)
  - Diabetes mellitus [Unknown]
  - Wound [Unknown]
  - Skin exfoliation [Unknown]
  - Orthostatic hypotension [Unknown]
